FAERS Safety Report 13293263 (Version 2)
Quarter: 2017Q2

REPORT INFORMATION
  Report Type: Spontaneous
  Country: US (occurrence: US)
  Receive Date: 20170303
  Receipt Date: 20170418
  Transmission Date: 20170830
  Serious: Yes (Hospitalization, Other)
  Sender: FDA-Public Use
  Company Number: US-JNJFOC-20170120033

PATIENT
  Age: 66 Year
  Sex: Female

DRUGS (1)
  1. XARELTO [Suspect]
     Active Substance: RIVAROXABAN
     Indication: DEEP VEIN THROMBOSIS
     Dosage: 15 MG AND 20 MG
     Route: 048
     Dates: start: 20130508, end: 20130722

REACTIONS (2)
  - Haematoma [Unknown]
  - Device dislocation [Unknown]

NARRATIVE: CASE EVENT DATE: 2013
